FAERS Safety Report 10061337 (Version 1)
Quarter: 2014Q2

REPORT INFORMATION
  Report Type: Spontaneous
  Country: MY (occurrence: MY)
  Receive Date: 20140407
  Receipt Date: 20140407
  Transmission Date: 20141212
  Serious: Yes (Other)
  Sender: FDA-Public Use
  Company Number: MY-INDICUS PHARMA-000245

PATIENT
  Age: 74 Year
  Sex: Male
  Weight: 53 kg

DRUGS (5)
  1. METFORMIN [Suspect]
     Indication: DIABETES MELLITUS
     Route: 048
  2. GLICLAZIDE [Suspect]
     Indication: PRODUCT USED FOR UNKNOWN INDICATION
  3. NO DRUG NAME [Concomitant]
  4. ACETYLSALICYLIC ACID [Concomitant]
  5. CALCIUM PANTOTHENATE/NICOTINAMIDE/PYRIDOXINE HYDROCHLORIDE/RIBOFLAVIN/THIAMINE HYDROCHLORIDE [Concomitant]

REACTIONS (5)
  - Change of bowel habit [Recovered/Resolved]
  - Hypoglycaemia [Recovered/Resolved]
  - Malabsorption [Unknown]
  - Weight decreased [Recovered/Resolved]
  - Anaemia vitamin B12 deficiency [Recovered/Resolved]
